FAERS Safety Report 5281314-2 (Version None)
Quarter: 2007Q1

REPORT INFORMATION
  Report Type: 
  Country: None (occurrence: None)
  Receive Date: 20061221
  Receipt Date: 20050719
  Transmission Date: 20070707
  Serious: No
  Sender: FDA-Public Use
  Company Number: 2005UW10772

PATIENT

DRUGS (3)
  1. XYLOCAINE [Suspect]
     Dosage: 2 ML, IJ
  2. XYLOCAINE [Suspect]
     Dosage: 2 ML, IM
     Route: 030
  3. DEPO-MEDROL [Concomitant]

REACTIONS (2)
  - PRURITUS [None]
  - SWELLING FACE [None]
